FAERS Safety Report 12719555 (Version 2)
Quarter: 2016Q4

REPORT INFORMATION
  Report Type: Spontaneous
  Country: CA (occurrence: CA)
  Receive Date: 20160907
  Receipt Date: 20161011
  Transmission Date: 20170207
  Serious: Yes (Other)
  Sender: FDA-Public Use
  Company Number: CA-ALEXION PHARMACEUTICALS INC.-A201606437

PATIENT
  Age: 17 Year
  Sex: Female

DRUGS (4)
  1. SOLIRIS [Suspect]
     Active Substance: ECULIZUMAB
     Indication: HAEMOLYTIC URAEMIC SYNDROME
     Dosage: 900 MG, SINGLE
     Route: 042
     Dates: start: 20160822, end: 20160822
  2. SOLIRIS [Suspect]
     Active Substance: ECULIZUMAB
     Indication: ESCHERICHIA TEST POSITIVE
     Dosage: 1200 MG, UNK
     Route: 042
     Dates: start: 20160829, end: 20160904
  3. SOLIRIS [Suspect]
     Active Substance: ECULIZUMAB
     Indication: OFF LABEL USE
     Dosage: 900 MG, UNK
     Route: 042
     Dates: start: 20160910, end: 20160916
  4. SOLIRIS [Suspect]
     Active Substance: ECULIZUMAB
     Dosage: 1200 MG, UNK
     Route: 042
     Dates: start: 20160926

REACTIONS (11)
  - Proteinuria [Recovering/Resolving]
  - Haemolysis [Recovering/Resolving]
  - Blindness [Recovered/Resolved]
  - Generalised tonic-clonic seizure [Recovered/Resolved]
  - Hemiparesis [Recovered/Resolved]
  - Blood pressure increased [Recovering/Resolving]
  - Off label use [Unknown]
  - Cerebrovascular accident [Recovered/Resolved]
  - Posterior reversible encephalopathy syndrome [Recovered/Resolved]
  - Leukoencephalopathy [Recovered/Resolved]
  - Postictal state [Recovered/Resolved]

NARRATIVE: CASE EVENT DATE: 20160825
